FAERS Safety Report 6544819-X (Version None)
Quarter: 2010Q1

REPORT INFORMATION
  Report Type: 
  Country: None (occurrence: None)
  Receive Date: 20100121
  Receipt Date: 20100112
  Transmission Date: 20100710
  Serious: Yes (Other)
  Sender: FDA-Public Use
  Company Number: ES-SANOFI-AVENTIS-2010SA002128

PATIENT
  Age: 54 Year
  Sex: Male

DRUGS (4)
  1. LEVOFLOXACIN [Suspect]
     Indication: PNEUMONIA
     Route: 042
     Dates: start: 20090823, end: 20090903
  2. CLEXANE [Suspect]
     Indication: PROPHYLAXIS
     Route: 058
     Dates: start: 20090824, end: 20090902
  3. URBASON [Suspect]
     Indication: BRONCHOSPASM
     Route: 042
     Dates: start: 20090823, end: 20090907
  4. PANTOPRAZOLE [Concomitant]
     Dates: start: 20090823, end: 20090908

REACTIONS (1)
  - CYTOLYTIC HEPATITIS [None]
